FAERS Safety Report 15757540 (Version 1)
Quarter: 2018Q4

REPORT INFORMATION
  Report Type: Report from Study
  Country: US (occurrence: US)
  Receive Date: 20181224
  Receipt Date: 20181224
  Transmission Date: 20190205
  Serious: Yes (Other)
  Sender: FDA-Public Use
  Company Number: US-MYLANLABS-2018M1093689

PATIENT

DRUGS (3)
  1. GEMCITABINE [Suspect]
     Active Substance: GEMCITABINE\GEMCITABINE HYDROCHLORIDE
     Indication: RENAL CELL CARCINOMA
     Dosage: ADMINISTERED OVER 30 MINUTES ON DAY 1 AND DAY 15 OF A 28-DAY CYCLE
     Route: 042
  2. CAPECITABINE. [Suspect]
     Active Substance: CAPECITABINE
     Indication: RENAL CELL CARCINOMA
     Dosage: ADMINISTERED FROM DAY 1 TO DAY 21 OF A 28-DAY CYCLE
     Route: 048
  3. BEVACIZUMAB. [Suspect]
     Active Substance: BEVACIZUMAB
     Indication: RENAL CELL CARCINOMA
     Dosage: ADMINISTERED ON DAY 1 AND DAY 15 OF A 28-DAY CYCLE
     Route: 042

REACTIONS (1)
  - Palmar-plantar erythrodysaesthesia syndrome [Unknown]
